FAERS Safety Report 4437827-6 (Version None)
Quarter: 2004Q3

REPORT INFORMATION
  Report Type: 
  Country: None (occurrence: None)
  Receive Date: 20040831
  Receipt Date: 20040512
  Transmission Date: 20050211
  Serious: Yes (Hospitalization, Other)
  Sender: FDA-Public Use
  Company Number: US-AMGEN-US076193

PATIENT
  Sex: Male

DRUGS (1)
  1. EPOGEN [Suspect]
     Indication: DIALYSIS
     Dates: end: 20040501

REACTIONS (3)
  - APLASIA PURE RED CELL [None]
  - BONE MARROW DEPRESSION [None]
  - THYMOMA [None]
